FAERS Safety Report 4399057-6 (Version None)
Quarter: 2004Q3

REPORT INFORMATION
  Report Type: 
  Country: None (occurrence: None)
  Receive Date: 20040712
  Receipt Date: 20040629
  Transmission Date: 20050211
  Serious: Yes (Death)
  Sender: FDA-Public Use
  Company Number: MEDI-0001813

PATIENT
  Age: 4 Month
  Sex: Male
  Weight: 4.33 kg

DRUGS (1)
  1. SYNAGIS [Suspect]
     Indication: ANTIVIRAL PROPHYLAXIS
     Dosage: 71 MG, 1 IN 30D, INTRAMUSCULAR
     Route: 030
     Dates: start: 20040109, end: 20040419

REACTIONS (1)
  - ACCIDENT [None]
